FAERS Safety Report 5957173-9 (Version None)
Quarter: 2008Q4

REPORT INFORMATION
  Report Type: 
  Country: None (occurrence: None)
  Receive Date: 20081117
  Receipt Date: 20081117
  Transmission Date: 20090506
  Serious: Yes (Life-Threatening)
  Sender: FDA-Public Use
  Company Number: None

PATIENT
  Age: 62 Year
  Sex: Female
  Weight: 77.1115 kg

DRUGS (3)
  1. HUMIRA [Suspect]
     Indication: PSORIASIS
     Dosage: 40 MG SQ Q 2 WEEKS
     Route: 058
     Dates: start: 20080401, end: 20081020
  2. HUMIRA [Suspect]
     Indication: PSORIATIC ARTHROPATHY
     Dosage: 40 MG SQ Q 2 WEEKS
     Route: 058
     Dates: start: 20080401, end: 20081020
  3. METHOTREXATE [Concomitant]

REACTIONS (1)
  - LEUKAEMIA [None]
